FAERS Safety Report 21284078 (Version 4)
Quarter: 2022Q4

REPORT INFORMATION
  Report Type: Spontaneous
  Country: KR (occurrence: KR)
  Receive Date: 20220901
  Receipt Date: 20221024
  Transmission Date: 20230113
  Serious: No
  Sender: FDA-Public Use
  Company Number: KR-009507513-2208KOR010793

PATIENT
  Age: 50 Year
  Sex: Male
  Weight: 71 kg

DRUGS (6)
  1. PREVYMIS [Suspect]
     Active Substance: LETERMOVIR
     Indication: Antiviral prophylaxis
     Dosage: STRENGTH: 240MG/12ML, ONCE DAILY
     Route: 042
     Dates: start: 20201127, end: 20201209
  2. PREVYMIS [Suspect]
     Active Substance: LETERMOVIR
     Dosage: STRENGTH: 240MG/12ML, ONCE DAILY
     Route: 042
     Dates: start: 20201222, end: 20201225
  3. PREVYMIS [Suspect]
     Active Substance: LETERMOVIR
     Indication: Antiviral prophylaxis
     Dosage: STRENGTH: 240MG, 1 TABLET, ONCE DAILY
     Route: 048
     Dates: start: 20201210, end: 20201221
  4. PREVYMIS [Suspect]
     Active Substance: LETERMOVIR
     Dosage: STRENGTH: 240MG, 1 TABLET, ONCE DAILY
     Route: 048
     Dates: start: 20201226, end: 20210129
  5. GANCICLOVIR [Concomitant]
     Active Substance: GANCICLOVIR
     Indication: Antiviral treatment
     Dosage: UNK
     Dates: start: 20210406
  6. CYCLOSPORINE [Concomitant]
     Active Substance: CYCLOSPORINE
     Indication: Prophylaxis against transplant rejection
     Dosage: UNK, QD
     Dates: start: 20201212

REACTIONS (1)
  - Drug ineffective [Unknown]

NARRATIVE: CASE EVENT DATE: 20210511
